FAERS Safety Report 19981584 (Version 3)
Quarter: 2021Q4

REPORT INFORMATION
  Report Type: Report from Study
  Country: JP (occurrence: JP)
  Receive Date: 20211021
  Receipt Date: 20211028
  Transmission Date: 20220303
  Serious: Yes (Hospitalization)
  Sender: FDA-Public Use
  Company Number: JP-BRISTOL-MYERS SQUIBB COMPANY-BMS-2021-107322

PATIENT
  Age: 70 Year
  Sex: Male

DRUGS (7)
  1. NIVOLUMAB [Suspect]
     Active Substance: NIVOLUMAB
     Indication: Gastric cancer
     Dosage: 240 MILLIGRAM
     Route: 042
     Dates: start: 20210611, end: 20211001
  2. NIVOLUMAB [Suspect]
     Active Substance: NIVOLUMAB
     Dosage: UNK
     Route: 065
     Dates: start: 20211011
  3. IPILIMUMAB [Suspect]
     Active Substance: IPILIMUMAB
     Indication: Gastric cancer
     Dosage: 1 MILLIGRAM/KILOGRAM
     Route: 042
     Dates: start: 20210611, end: 20210917
  4. IPILIMUMAB [Suspect]
     Active Substance: IPILIMUMAB
     Dosage: UNK
     Route: 065
     Dates: start: 20211011
  5. OXYCODONE HYDROCHLORIDE [Concomitant]
     Active Substance: OXYCODONE HYDROCHLORIDE
     Indication: Tumour pain
     Dosage: 2.5 MILLIGRAM
     Route: 048
     Dates: start: 20210604
  6. OXYCODONE HYDROCHLORIDE [Concomitant]
     Active Substance: OXYCODONE HYDROCHLORIDE
     Dosage: 10 MILLIGRAM
     Route: 048
     Dates: start: 20210611
  7. URSODIOL [Concomitant]
     Active Substance: URSODIOL
     Indication: Bile duct stenosis
     Dosage: 300 MILLIGRAM
     Route: 048
     Dates: start: 20210604

REACTIONS (1)
  - Decreased appetite [Recovered/Resolved]

NARRATIVE: CASE EVENT DATE: 20211015
